FAERS Safety Report 9845955 (Version 2)
Quarter: 2014Q1

REPORT INFORMATION
  Report Type: Spontaneous
  Country: US (occurrence: US)
  Receive Date: 20140127
  Receipt Date: 20140127
  Transmission Date: 20141002
  Serious: Yes (Other)
  Sender: FDA-Public Use
  Company Number: US-PERRIGO-14US000512

PATIENT
  Age: 46 Year
  Sex: Male
  Weight: 65.76 kg

DRUGS (1)
  1. NAPROXEN SODIUM 220 MG 368 [Suspect]
     Indication: HEADACHE
     Dosage: 220 MG, SINGLE
     Route: 048
     Dates: start: 20140116, end: 20140116

REACTIONS (2)
  - Throat tightness [Recovered/Resolved]
  - Urticaria [Recovering/Resolving]
